FAERS Safety Report 23147040 (Version 1)
Quarter: 2023Q4

REPORT INFORMATION
  Report Type: Report from Study
  Country: US (occurrence: US)
  Receive Date: 20231106
  Receipt Date: 20231106
  Transmission Date: 20240109
  Serious: No
  Sender: FDA-Public Use
  Company Number: US-drreddys-SPO/USA/23/0180734

PATIENT
  Age: 32 Year
  Sex: Female
  Weight: 69.98 kg

DRUGS (2)
  1. SAPROPTERIN DIHYDROCHLORIDE [Suspect]
     Active Substance: SAPROPTERIN DIHYDROCHLORIDE
     Indication: Phenylketonuria
     Dosage: DISSOLVE TWO 500 MG POWDER PACKETS AND FOUR 100 MG POWDER PACKETS IN 4 TO 8 OUNCES OF WATER OR JUICE
     Route: 048
  2. SAPROPTERIN DIHYDROCHLORIDE [Suspect]
     Active Substance: SAPROPTERIN DIHYDROCHLORIDE
     Indication: Phenylketonuria
     Dosage: DISSOLVE TWO 500 MG POWDER PACKETS AND FOUR 100 MG POWDER PACKETS IN 4 TO 8 OUNCES OF WATER OR JUICE
     Route: 048

REACTIONS (3)
  - Impaired quality of life [Unknown]
  - Product administration interrupted [Unknown]
  - Product dose omission issue [Unknown]
